FAERS Safety Report 5209545-8 (Version None)
Quarter: 2007Q1

REPORT INFORMATION
  Report Type: 
  Country: None (occurrence: None)
  Receive Date: 20070116
  Receipt Date: 20070104
  Transmission Date: 20070707
  Serious: Yes (Disabling, Other)
  Sender: FDA-Public Use
  Company Number: NO-PFIZER INC-2007002291

PATIENT
  Sex: Male

DRUGS (1)
  1. SINEQUAN [Suspect]
     Route: 048
     Dates: start: 19710101, end: 19730101

REACTIONS (11)
  - AGGRESSION [None]
  - AGITATION [None]
  - BREAST ENLARGEMENT [None]
  - DRY MOUTH [None]
  - EJACULATION DISORDER [None]
  - ERECTILE DYSFUNCTION [None]
  - HIV TEST POSITIVE [None]
  - HOT FLUSH [None]
  - MUSCLE SPASMS [None]
  - POST VIRAL FATIGUE SYNDROME [None]
  - TESTICULAR PAIN [None]
